FAERS Safety Report 7355894-7 (Version None)
Quarter: 2011Q1

REPORT INFORMATION
  Report Type: 
  Country: None (occurrence: None)
  Receive Date: 20110316
  Receipt Date: 20101103
  Transmission Date: 20110831
  Serious: No
  Sender: FDA-Public Use
  Company Number: US-BAYER-201023507BCC

PATIENT
  Sex: Female

DRUGS (4)
  1. ALEVE [Suspect]
     Indication: PAIN IN EXTREMITY
  2. ADVIL LIQUI-GELS [Concomitant]
     Indication: PAIN IN EXTREMITY
  3. ADVIL LIQUI-GELS [Concomitant]
     Indication: ARTHRITIS
  4. ALEVE [Suspect]
     Indication: ARTHRITIS

REACTIONS (1)
  - NO ADVERSE EVENT [None]
